FAERS Safety Report 10953037 (Version 1)
Quarter: 2015Q1

REPORT INFORMATION
  Report Type: Spontaneous
  Country: US (occurrence: None)
  Receive Date: 20150323
  Receipt Date: 20150323
  Transmission Date: 20150721
  Serious: Yes (Other)
  Sender: FDA-Public Use
  Company Number: 20150137

PATIENT
  Age: 19 Year
  Sex: Female

DRUGS (6)
  1. SYNTHROID [Concomitant]
     Active Substance: LEVOTHYROXINE SODIUM
  2. CRYSELLE  (ETHINYL ESTRADIL AND NORGESTREL) [Concomitant]
  3. NAPROXEN. [Concomitant]
     Active Substance: NAPROXEN
  4. INJECTAFER [Suspect]
     Active Substance: FERRIC CARBOXYMALTOSE
     Indication: PRODUCT USED FOR UNKNOWN INDICATION
     Dates: start: 20140829, end: 20140905
  5. ACTEMRA (TOCILIZUMAB) [Concomitant]
  6. VALACIFLOVIR [Concomitant]

REACTIONS (4)
  - Throat irritation [None]
  - Nausea [None]
  - Rash [None]
  - Urticaria [None]

NARRATIVE: CASE EVENT DATE: 20140829
